FAERS Safety Report 4511703-2 (Version None)
Quarter: 2004Q4

REPORT INFORMATION
  Report Type: 
  Country: None (occurrence: None)
  Receive Date: 20041123
  Receipt Date: 20041123
  Transmission Date: 20050328
  Serious: Yes (Other)
  Sender: FDA-Public Use
  Company Number: None

PATIENT
  Age: 87 Year
  Sex: Male
  Weight: 68 kg

DRUGS (12)
  1. TERAZOSIN HCL [Suspect]
  2. CARVEDILOL [Concomitant]
  3. POTASSIUM CHLORIDE [Concomitant]
  4. TAMSULOSIN HCL [Concomitant]
  5. FUROSEMIDE [Concomitant]
  6. FINASTERIDE [Concomitant]
  7. LISINOPRIL [Concomitant]
  8. SIMVASTATIN [Concomitant]
  9. GLYBURIDE [Concomitant]
  10. METFORMIN HCL [Concomitant]
  11. OMEPRAZOLE [Concomitant]
  12. LORAZEPAM [Concomitant]

REACTIONS (1)
  - HYPOTENSION [None]
